FAERS Safety Report 14252632 (Version 1)
Quarter: 2017Q4

REPORT INFORMATION
  Report Type: Spontaneous
  Country: GB (occurrence: GB)
  Receive Date: 20171205
  Receipt Date: 20171205
  Transmission Date: 20180321
  Serious: Yes (Other)
  Sender: FDA-Public Use
  Company Number: GB-BAYER-2017-229692

PATIENT
  Age: 31 Year
  Sex: Female
  Weight: 76 kg

DRUGS (1)
  1. MIRENA [Suspect]
     Active Substance: LEVONORGESTREL
     Dosage: 20 MCG/24HR, CONT
     Route: 015
     Dates: start: 20170829, end: 20171031

REACTIONS (5)
  - Weight increased [Not Recovered/Not Resolved]
  - Anxiety [Recovering/Resolving]
  - Depression [Recovering/Resolving]
  - Hirsutism [Not Recovered/Not Resolved]
  - Acne [Not Recovered/Not Resolved]

NARRATIVE: CASE EVENT DATE: 20170905
